FAERS Safety Report 4596965-8 (Version None)
Quarter: 2005Q1

REPORT INFORMATION
  Report Type: 
  Country: None (occurrence: None)
  Receive Date: 20050228
  Receipt Date: 20050214
  Transmission Date: 20050727
  Serious: Yes (Other)
  Sender: FDA-Public Use
  Company Number: 2005023694

PATIENT
  Age: 48 Year
  Sex: Female

DRUGS (3)
  1. CELEBREX [Suspect]
     Indication: ARTHRITIS
  2. BEXTRA [Suspect]
     Indication: ARTHRITIS
     Dosage: 10 MG, ORAL
     Route: 048
  3. ROFECOXIB [Suspect]
     Indication: ILL-DEFINED DISORDER

REACTIONS (5)
  - BLOOD PRESSURE INCREASED [None]
  - DRUG INEFFECTIVE [None]
  - DYSPEPSIA [None]
  - MOBILITY DECREASED [None]
  - POLLAKIURIA [None]
